FAERS Safety Report 4664040-X (Version None)
Quarter: 2005Q2

REPORT INFORMATION
  Report Type: 
  Country: None (occurrence: None)
  Receive Date: 20050516
  Receipt Date: 20050505
  Transmission Date: 20051028
  Serious: Yes (Other)
  Sender: FDA-Public Use
  Company Number: 214217

PATIENT
  Age: 50 Year
  Sex: Female
  Weight: 112 kg

DRUGS (2)
  1. AVASTIN [Suspect]
     Indication: OVARIAN CANCER
     Dosage: 5 MG/KG, Q14D, INTRAVENOUS
     Route: 042
     Dates: start: 20050201, end: 20050412
  2. CYTOXAN [Concomitant]

REACTIONS (3)
  - ABDOMINAL PAIN [None]
  - ASCITES [None]
  - PROTEINURIA [None]
